FAERS Safety Report 24659949 (Version 3)
Quarter: 2025Q1

REPORT INFORMATION
  Report Type: Report from Study
  Country: FR (occurrence: FR)
  Receive Date: 20241125
  Receipt Date: 20250107
  Transmission Date: 20250409
  Serious: No
  Sender: BAYER HEALTHCARE PHARMACEUTICALS INC.
  Company Number: FR-BAYER-2024A166834

PATIENT

DRUGS (2)
  1. LAROTRECTINIB [Suspect]
     Active Substance: LAROTRECTINIB
     Indication: NTRK gene fusion cancer
     Dates: start: 20211104
  2. LAROTRECTINIB [Suspect]
     Active Substance: LAROTRECTINIB
     Indication: Neoplasm

REACTIONS (2)
  - Gamma-glutamyltransferase increased [None]
  - Blood creatinine increased [None]

NARRATIVE: CASE EVENT DATE: 20211129
